FAERS Safety Report 19680939 (Version 3)
Quarter: 2021Q4

REPORT INFORMATION
  Report Type: Spontaneous
  Country: BE (occurrence: BE)
  Receive Date: 20210810
  Receipt Date: 20211213
  Transmission Date: 20220304
  Serious: Yes (Death, Hospitalization, Other)
  Sender: FDA-Public Use
  Company Number: BE-BAYER-2021-188825

PATIENT
  Sex: Female

DRUGS (2)
  1. VITRAKVI [Suspect]
     Active Substance: LAROTRECTINIB
     Indication: Neoplasm malignant
     Dosage: 100 MG, BID
     Dates: start: 202107
  2. VITRAKVI [Suspect]
     Active Substance: LAROTRECTINIB
     Indication: Neoplasm malignant
     Dosage: 75 MG

REACTIONS (6)
  - Hepatocellular carcinoma [Fatal]
  - Faecaloma [None]
  - Constipation [None]
  - Anaemia [None]
  - Metastases to lung [None]
  - Loss of therapeutic response [None]
